FAERS Safety Report 5051114-7 (Version None)
Quarter: 2006Q3

REPORT INFORMATION
  Report Type: 
  Country: None (occurrence: None)
  Receive Date: 20060714
  Receipt Date: 20060705
  Transmission Date: 20061208
  Serious: Yes (Other)
  Sender: FDA-Public Use
  Company Number: US-JNJFOC-20060206297

PATIENT
  Sex: Female
  Weight: 53.52 kg

DRUGS (4)
  1. ELMIRON [Suspect]
     Route: 048
  2. ELMIRON [Suspect]
     Indication: CYSTITIS INTERSTITIAL
     Route: 048
  3. IMIPRAMINE [Concomitant]
     Indication: CYSTITIS INTERSTITIAL
  4. FOSAMAX [Concomitant]
     Indication: OSTEOPOROSIS

REACTIONS (1)
  - HYPERGAMMAGLOBULINAEMIA BENIGN MONOCLONAL [None]
